FAERS Safety Report 18701840 (Version 2)
Quarter: 2021Q1

REPORT INFORMATION
  Report Type: Report from Study
  Country: US (occurrence: US)
  Receive Date: 20210105
  Receipt Date: 20210322
  Transmission Date: 20210419
  Serious: Yes (Life-Threatening, Hospitalization, Other)
  Sender: FDA-Public Use
  Company Number: US-JNJFOC-20201255132

PATIENT
  Age: 65 Year
  Sex: Female

DRUGS (3)
  1. SPRAVATO [Suspect]
     Active Substance: ESKETAMINE
     Indication: DEPRESSION
     Dosage: 56MG, 5 TOTAL DOSES
     Dates: start: 20190625, end: 20190710
  2. SPRAVATO [Suspect]
     Active Substance: ESKETAMINE
     Dosage: 84MG, 33 TOTAL DOSES
     Dates: start: 20190712, end: 20201201
  3. SPRAVATO [Suspect]
     Active Substance: ESKETAMINE
     Dates: start: 20201229, end: 20201229

REACTIONS (1)
  - Asthma [Recovered/Resolved]

NARRATIVE: CASE EVENT DATE: 20201229
